FAERS Safety Report 20962815 (Version 1)
Quarter: 2022Q2

REPORT INFORMATION
  Report Type: Report from Study
  Country: US (occurrence: None)
  Receive Date: 20220615
  Receipt Date: 20220615
  Transmission Date: 20220721
  Serious: No
  Sender: FDA-Public Use
  Company Number: US-MDD US Operations-MDD202105-001025

PATIENT
  Age: 82 Year
  Sex: Female

DRUGS (10)
  1. APOKYN [Suspect]
     Active Substance: APOMORPHINE HYDROCHLORIDE
     Indication: Parkinson^s disease
     Route: 058
  2. APOKYN [Suspect]
     Active Substance: APOMORPHINE HYDROCHLORIDE
     Dosage: NOT PROVIDED
     Route: 058
     Dates: start: 20161120
  3. APOKYN [Suspect]
     Active Substance: APOMORPHINE HYDROCHLORIDE
     Dosage: NOT PROVIDED
     Dates: start: 2016
  4. APOKYN [Suspect]
     Active Substance: APOMORPHINE HYDROCHLORIDE
     Dosage: 30MG/3ML
     Route: 058
     Dates: start: 20190620
  5. APOKYN [Suspect]
     Active Substance: APOMORPHINE HYDROCHLORIDE
     Route: 058
     Dates: start: 20190716
  6. APOKYN [Suspect]
     Active Substance: APOMORPHINE HYDROCHLORIDE
     Dosage: NOT PROVIDED
     Route: 058
     Dates: start: 20161120
  7. APOKYN [Suspect]
     Active Substance: APOMORPHINE HYDROCHLORIDE
     Route: 058
     Dates: start: 20190716
  8. APOKYN [Suspect]
     Active Substance: APOMORPHINE HYDROCHLORIDE
     Route: 058
     Dates: start: 201907
  9. LEXAPRO [Concomitant]
     Active Substance: ESCITALOPRAM OXALATE
     Dosage: NOT PROVIDED
  10. ONDANSETRON [Interacting]
     Active Substance: ONDANSETRON
     Indication: Nausea
     Dosage: NOT PROVIDED

REACTIONS (18)
  - Influenza like illness [Recovered/Resolved]
  - Hot flush [Recovered/Resolved]
  - Feeling abnormal [Unknown]
  - Discomfort [Recovered/Resolved]
  - Paraesthesia [Recovered/Resolved]
  - Hypokinesia [Recovered/Resolved]
  - Illness [Unknown]
  - Abdominal discomfort [Unknown]
  - Feeling hot [Unknown]
  - Burning sensation [Unknown]
  - Nausea [Unknown]
  - Dizziness [Recovered/Resolved]
  - Asthenia [Recovered/Resolved]
  - Fatigue [Not Recovered/Not Resolved]
  - Dehydration [Unknown]
  - Nausea [Unknown]
  - Drug interaction [Recovered/Resolved]
  - Contraindicated product administered [Unknown]

NARRATIVE: CASE EVENT DATE: 20210521
